FAERS Safety Report 9521962 (Version 1)
Quarter: 2013Q1

REPORT INFORMATION
  Report Type: Spontaneous
  Country: US (occurrence: None)
  Receive Date: 20130305
  Receipt Date: 20130305
  Transmission Date: 20140127
  Serious: Yes (Other)
  Sender: FDA-Public Use
  Company Number: 163-21880-12072686

PATIENT
  Age: 79 Year
  Sex: Female

DRUGS (16)
  1. REVLIMID [Suspect]
     Indication: PLASMA CELL MYELOMA
     Dosage: 10 MG, 21 IN 28 D, PO
     Route: 048
     Dates: start: 20120414
  2. CLARITHROMYCIN (CLARITHROMYCIN) (UNKNOWN) [Concomitant]
  3. CALCIUM + VITAMIN D (LEKOVIT CA) (UNKNOWN) [Concomitant]
  4. FOLIC ACID (FOLIC ACID) (UNKNOWN) [Concomitant]
  5. MULTIVITAMINS (MULTIVITAMINS) (UNKNOWN) [Concomitant]
  6. RESTASIS (CICLOSPORIN) (UNKNOWN) [Concomitant]
  7. AMLODIPINE (AMLODIPINE) (UNKNOWN) [Concomitant]
  8. DEXAMETHASONE (DEXAMETHASONE) (UNKNOWN) [Concomitant]
  9. METHADONE (METHADONE) (UNKNOWN) (METHADONE) [Concomitant]
  10. SYNTHROID (LEVOTHYROXINE SODIUM) (UNKNOWN) [Concomitant]
  11. AUGMENTIN (CLAVULIN) (UNKNOWN) [Concomitant]
  12. FENTANYL (FENTANYL) (UNKNOWN) (FENTANYL) [Concomitant]
  13. ACYCLOVIR (ACICLOVIR) (UNKNOWN) [Concomitant]
  14. DIPHENOXYLATE (DIPHENOXYLATE) (UNKNOWN) [Concomitant]
  15. PERCOCET (OXYCOCET) (UNKNOWN) [Concomitant]
  16. ALLOPURINOL (ALLOPURINOL) (UNKNOWN) [Concomitant]

REACTIONS (5)
  - Fatigue [None]
  - Bone pain [None]
  - Dry mouth [None]
  - Malaise [None]
  - Sinusitis [None]
